FAERS Safety Report 8750719 (Version 2)
Quarter: 2012Q4

REPORT INFORMATION
  Report Type: Spontaneous
  Country: None (occurrence: None)
  Receive Date: 20120810
  Receipt Date: 20120829
  Transmission Date: 20130627
  Serious: Yes (Other)
  Sender: FDA-Public Use
  Company Number: AUR-APL-2012-03333

PATIENT
  Age: 16 Year
  Sex: Male
  Weight: 56.4 kg

DRUGS (4)
  1. OLANZAPINE [Suspect]
     Indication: PSYCHOTIC DISORDER
     Dosage: (5 MG, 1 IN 1 D), UNKNOWN
     Dates: start: 20120524
  2. ZYPREXA [Suspect]
     Indication: PSYCHOTIC DISORDER
     Dosage: (5 MG),INTRAMUSCULAR, (2.5 MG),INTRAMUSCULAR, 15 MG (15 MG, 1 IN 1  D),ORAL
     Route: 030
     Dates: start: 20120521, end: 20120523
  3. ZYPREXA [Suspect]
     Indication: PSYCHOTIC DISORDER
     Dosage: (5 MG),INTRAMUSCULAR, (2.5 MG),INTRAMUSCULAR, 15 MG (15 MG, 1 IN 1  D),ORAL
     Route: 030
     Dates: start: 20120522
  4. ZUCLOPENTHIXOL (ZUCLOPENTHIXOL) [Concomitant]

REACTIONS (7)
  - PERICARDITIS [None]
  - PSYCHOTIC DISORDER [None]
  - BLOOD THROMBIN INCREASED [None]
  - CHEST PAIN [None]
  - ELECTROCARDIOGRAM ST SEGMENT ELEVATION [None]
  - LEFT VENTRICULAR HYPERTROPHY [None]
  - MYOCARDITIS [None]
